FAERS Safety Report 6369173-8 (Version None)
Quarter: 2009Q3

REPORT INFORMATION
  Report Type: 
  Country: None (occurrence: None)
  Receive Date: 20090922
  Receipt Date: 20090921
  Transmission Date: 20100115
  Serious: No
  Sender: FDA-Public Use
  Company Number: US-ROXANE LABORATORIES, INC.-2009-RO-00978RO

PATIENT
  Sex: Female

DRUGS (1)
  1. MEGESTROL ACETATE [Suspect]
     Indication: APPETITE DISORDER
     Dosage: 20 MG
     Dates: start: 20090701, end: 20090901

REACTIONS (1)
  - MENSTRUAL DISORDER [None]
